FAERS Safety Report 26159614 (Version 1)
Quarter: 2025Q4

REPORT INFORMATION
  Report Type: Spontaneous
  Country: US (occurrence: None)
  Receive Date: 20251216
  Receipt Date: 20251216
  Transmission Date: 20260118
  Serious: No
  Sender: UCB
  Company Number: US-UCBSA-2025061278

PATIENT
  Age: 36 Year

DRUGS (9)
  1. BIMZELX [Suspect]
     Active Substance: BIMEKIZUMAB-BKZX
     Indication: Hidradenitis
     Dosage: 320 MILLIGRAM, UNK
  2. GABAPENTIN [Concomitant]
     Active Substance: GABAPENTIN
     Indication: Product used for unknown indication
     Dosage: 1800 MILLIGRAM, DAILY
  3. GABAPEscitalopramENTIN [Concomitant]
     Indication: Product used for unknown indication
     Dosage: 20 MILLIGRAMS, DAILY,
  4. BELSOMRA [Concomitant]
     Active Substance: SUVOREXANT
     Indication: Product used for unknown indication
     Dosage: 20 MILLIGRAM
  5. VALIUM [Concomitant]
     Active Substance: DIAZEPAM
     Indication: Product used for unknown indication
     Dosage: 15 MILLIGRAM
  6. OMEPRAZOLE [Concomitant]
     Active Substance: OMEPRAZOLE
     Indication: Product used for unknown indication
     Dosage: UNK, 2X/DAY (BID)
  7. erythromycin, [Concomitant]
     Indication: Product used for unknown indication
  8. Rixeulti [Concomitant]
     Indication: Product used for unknown indication
  9. bulsapram [Concomitant]
     Indication: Product used for unknown indication

REACTIONS (1)
  - Anxiety [Unknown]
